FAERS Safety Report 10020805 (Version 10)
Quarter: 2018Q1

REPORT INFORMATION
  Report Type: Report from Study
  Country: CN (occurrence: CN)
  Receive Date: 20140319
  Receipt Date: 20180223
  Transmission Date: 20180508
  Serious: Yes (Hospitalization)
  Sender: FDA-Public Use
  Company Number: CN-ROCHE-1236891

PATIENT
  Age: 61 Year
  Sex: Female
  Weight: 60 kg

DRUGS (26)
  1. CREATINE PHOSPHATE SODIUM [Concomitant]
     Active Substance: CREATINE
     Route: 065
     Dates: start: 20130626, end: 20130716
  2. MUCOSOLVAN [Concomitant]
     Active Substance: AMBROXOL HYDROCHLORIDE
     Route: 065
     Dates: start: 20130730, end: 20130801
  3. BICYCLOL [Concomitant]
     Active Substance: BICYCLOL
     Dosage: FOR: LIVER PROTECTION
     Route: 065
     Dates: start: 20130607, end: 20130607
  4. RECOMBINANT HUMAN INTERLEUKIN-11 [Concomitant]
     Dosage: FOR: LITRES OF PLATELETS
     Route: 065
     Dates: start: 20130612, end: 20130710
  5. COMPOUND CHLORHEXIDINE CONTAINING GARGLE FLUID (UNK INGREDIENTS) [Concomitant]
     Route: 065
     Dates: start: 20130610, end: 20130610
  6. ALLOPURINOL. [Concomitant]
     Active Substance: ALLOPURINOL
     Route: 065
     Dates: start: 20130524, end: 20130608
  7. HYDROTALCITE [Concomitant]
     Active Substance: HYDROTALCITE
     Route: 065
     Dates: start: 20130617, end: 20130617
  8. PARACETAMOL [Concomitant]
     Active Substance: ACETAMINOPHEN
     Indication: PREMEDICATION
     Route: 065
     Dates: start: 20130531, end: 20130820
  9. OMEPRAZOLE SODIUM [Concomitant]
     Active Substance: OMEPRAZOLE SODIUM
     Indication: GASTRIC ULCER
     Route: 065
     Dates: start: 20130611, end: 20130611
  10. TROPISETRON HYDROCHLORIDE [Concomitant]
     Active Substance: TROPISETRON HYDROCHLORIDE
     Indication: VOMITING
     Route: 065
     Dates: start: 20130601, end: 20130821
  11. ALLOPURINOL. [Concomitant]
     Active Substance: ALLOPURINOL
     Route: 065
     Dates: start: 20130601, end: 20130822
  12. DOXORUBICIN [Suspect]
     Active Substance: DOXORUBICIN
     Indication: DIFFUSE LARGE B-CELL LYMPHOMA
     Dosage: LAST DOSE 85 MG , MOST RECENT DOSE ON 01/JUN/2013 PRIOR TO EVENT.?DATE OF LAST DOSE PRIOR TO FEBRILE
     Route: 042
     Dates: start: 20130601
  13. PREDNISONE. [Suspect]
     Active Substance: PREDNISONE
     Indication: DIFFUSE LARGE B-CELL LYMPHOMA
     Dosage: MOST RECENT DOSE ON 05/JUN/2013, LAST DOSE 100MG?DATE OF LAST DOSE PRIOR TO FEBRILE NEUTROPENIA:22/J
     Route: 048
     Dates: start: 20130601
  14. DIPHENHYDRAMINE HYDROCHLORIDE. [Concomitant]
     Active Substance: DIPHENHYDRAMINE HYDROCHLORIDE
     Indication: PREMEDICATION
     Route: 065
     Dates: start: 20130531, end: 20130820
  15. TROPISETRON HYDROCHLORIDE [Concomitant]
     Active Substance: TROPISETRON HYDROCHLORIDE
     Route: 065
     Dates: start: 20130531, end: 20130821
  16. SODIUM BICARBONATE. [Concomitant]
     Active Substance: SODIUM BICARBONATE
     Route: 065
     Dates: start: 20130601, end: 20130822
  17. OBINUTUZUMAB. [Suspect]
     Active Substance: OBINUTUZUMAB
     Indication: DIFFUSE LARGE B-CELL LYMPHOMA
     Dosage: VOLUME OF LAST DOSE 40 ML AT DOSE CONCENTRATION 4 MG/ML, MOST RECENT DOSE ON 17/JUL/2013?DATE OF LAS
     Route: 042
     Dates: start: 20130531
  18. GLUTATHIONE [Concomitant]
     Active Substance: GLUTATHIONE
     Route: 065
     Dates: start: 20130626, end: 20130626
  19. CYTARABINE. [Concomitant]
     Active Substance: CYTARABINE
     Route: 065
     Dates: start: 20130523, end: 20130523
  20. CYCLOPHOSPHAMIDE. [Suspect]
     Active Substance: CYCLOPHOSPHAMIDE
     Indication: DIFFUSE LARGE B-CELL LYMPHOMA
     Dosage: MOST RECENT ON 18/JUL/2013, LAST DOSE 1275MG?DATE OF LAST DOSE PRIOR TO LEUKOPENIA:26/JUN/2013
     Route: 042
     Dates: start: 20130601
  21. FAMOTIDINE. [Concomitant]
     Active Substance: FAMOTIDINE
     Route: 065
     Dates: start: 20130625, end: 20130822
  22. TIENAM [Concomitant]
     Active Substance: CILASTATIN SODIUM\IMIPENEM
     Route: 065
     Dates: start: 20130728, end: 20130801
  23. INDOMETACIN [Concomitant]
     Active Substance: INDOMETHACIN
     Route: 065
     Dates: start: 20130728, end: 20130728
  24. DEXAMETHASONE. [Concomitant]
     Active Substance: DEXAMETHASONE
     Route: 065
     Dates: start: 20130523, end: 20130523
  25. VINCRISTINE [Suspect]
     Active Substance: VINCRISTINE
     Indication: DIFFUSE LARGE B-CELL LYMPHOMA
     Dosage: MOST RECENT ON 01/JUN/2013, MOST RECENT DOSE 2 MG INTRAVENOUS PUSH?DATE OF LAST DOSE PRIOR TO FEBRIL
     Route: 040
     Dates: start: 20130601
  26. SODIUM BICARBONATE. [Concomitant]
     Active Substance: SODIUM BICARBONATE
     Route: 065
     Dates: start: 20130524, end: 20130608

REACTIONS (4)
  - Febrile neutropenia [Recovered/Resolved]
  - Neutropenia [Recovered/Resolved]
  - Febrile neutropenia [Recovered/Resolved]
  - Leukopenia [Recovered/Resolved]

NARRATIVE: CASE EVENT DATE: 20130611
